FAERS Safety Report 25575961 (Version 2)
Quarter: 2025Q4

REPORT INFORMATION
  Report Type: Spontaneous
  Country: US (occurrence: US)
  Receive Date: 20250718
  Receipt Date: 20251113
  Transmission Date: 20260118
  Serious: No
  Sender: LUPIN
  Company Number: US-LUPIN PHARMACEUTICALS INC.-2025-06289

PATIENT
  Age: 30 Year

DRUGS (1)
  1. ALBUTEROL SULFATE [Suspect]
     Active Substance: ALBUTEROL SULFATE
     Indication: Asthma
     Dosage: 2 PUFFS 4 HOURS A DAY

REACTIONS (4)
  - Drug dose omission by device [Unknown]
  - Device occlusion [Unknown]
  - Device delivery system issue [Unknown]
  - No adverse event [Unknown]
